FAERS Safety Report 10140000 (Version 2)
Quarter: 2014Q2

REPORT INFORMATION
  Report Type: Spontaneous
  Country: US (occurrence: US)
  Receive Date: 20140429
  Receipt Date: 20140523
  Transmission Date: 20141212
  Serious: Yes (Other)
  Sender: FDA-Public Use
  Company Number: PHEH2014US008254

PATIENT
  Age: 27 Year
  Sex: Male

DRUGS (1)
  1. GILENYA [Suspect]
     Indication: MULTIPLE SCLEROSIS
     Dosage: 0.5 MG, QD
     Route: 048
     Dates: start: 20140328

REACTIONS (5)
  - Eye injury [Unknown]
  - Feeling abnormal [Unknown]
  - Insomnia [Unknown]
  - Irritability [Unknown]
  - Drug ineffective [Unknown]
